FAERS Safety Report 18673000 (Version 1)
Quarter: 2020Q4

REPORT INFORMATION
  Report Type: Spontaneous
  Country: US (occurrence: US)
  Receive Date: 20201229
  Receipt Date: 20201229
  Transmission Date: 20210114
  Serious: Yes (Hospitalization, Other)
  Sender: FDA-Public Use
  Company Number: US-CIPLA LTD.-2020US09497

PATIENT

DRUGS (1)
  1. MELOXICAM. [Suspect]
     Active Substance: MELOXICAM
     Indication: BACK PAIN
     Dosage: DAILY OVER THE PAST 6 MONTHS, UNK
     Route: 065

REACTIONS (2)
  - Gastrointestinal disorder [Unknown]
  - Lower gastrointestinal haemorrhage [Unknown]
